FAERS Safety Report 13431051 (Version 2)
Quarter: 2017Q2

REPORT INFORMATION
  Report Type: Report from Study
  Country: NL (occurrence: NL)
  Receive Date: 20170412
  Receipt Date: 20170420
  Transmission Date: 20170830
  Serious: Yes (Hospitalization)
  Sender: FDA-Public Use
  Company Number: PHHO2017NL006140

PATIENT
  Sex: Male

DRUGS (2)
  1. MYCOPHENOLIC ACID. [Suspect]
     Active Substance: MYCOPHENOLIC ACID
     Indication: HAEMATOLOGICAL MALIGNANCY
     Dosage: 2160 (TOTAL DAILY DOSE)
     Route: 048
     Dates: start: 20170316, end: 20170322
  2. SANDIMMUN [Suspect]
     Active Substance: CYCLOSPORINE
     Indication: HAEMATOLOGICAL MALIGNANCY
     Dosage: 750 (TOTAL DAILY DOSE)
     Route: 065
     Dates: start: 20170320, end: 20170322

REACTIONS (1)
  - Pyrexia [Recovered/Resolved]

NARRATIVE: CASE EVENT DATE: 20170322
